FAERS Safety Report 5032240-5 (Version None)
Quarter: 2006Q2

REPORT INFORMATION
  Report Type: 
  Country: None (occurrence: None)
  Receive Date: 20060619
  Receipt Date: 20060606
  Transmission Date: 20061013
  Serious: Yes (Hospitalization, Other)
  Sender: FDA-Public Use
  Company Number: HQWYE784903AUG04

PATIENT
  Age: 58 Year
  Sex: Female
  Weight: 52.21 kg

DRUGS (2)
  1. PREMPRO [Suspect]
  2. PREMARIN [Suspect]

REACTIONS (7)
  - BREAST CANCER METASTATIC [None]
  - BREAST CYST [None]
  - BREAST MICROCALCIFICATION [None]
  - FIBROADENOMA OF BREAST [None]
  - METASTASES TO LYMPH NODES [None]
  - OESTROGEN RECEPTOR ASSAY POSITIVE [None]
  - PROGESTERONE RECEPTOR ASSAY POSITIVE [None]
